FAERS Safety Report 5317572-5 (Version None)
Quarter: 2007Q2

REPORT INFORMATION
  Report Type: 
  Country: None (occurrence: None)
  Receive Date: 20070507
  Receipt Date: 20070424
  Transmission Date: 20071010
  Serious: Yes (Other)
  Sender: FDA-Public Use
  Company Number: PHEH2007US06243

PATIENT
  Sex: Male

DRUGS (1)
  1. DIOVAN HCT [Suspect]
     Dosage: UNK, UNK

REACTIONS (5)
  - ANURIA [None]
  - DRUG INEFFECTIVE [None]
  - JOINT SWELLING [None]
  - PLATELET COUNT ABNORMAL [None]
  - RASH [None]
